FAERS Safety Report 5525965-6 (Version None)
Quarter: 2007Q4

REPORT INFORMATION
  Report Type: 
  Country: None (occurrence: None)
  Receive Date: 20071126
  Receipt Date: 20071116
  Transmission Date: 20080405
  Serious: Yes (Hospitalization)
  Sender: FDA-Public Use
  Company Number: US-ABBOTT-07P-163-0425103-00

PATIENT
  Sex: Male
  Weight: 74.91 kg

DRUGS (2)
  1. HUMIRA [Suspect]
     Indication: CROHN'S DISEASE
     Route: 058
     Dates: start: 20070101
  2. SOMATROPIN [Interacting]
     Indication: CROHN'S DISEASE
     Dates: start: 20070301

REACTIONS (7)
  - BREAST ENLARGEMENT [None]
  - BREAST PAIN [None]
  - CLOSTRIDIAL INFECTION [None]
  - DIABETES INSIPIDUS [None]
  - DRUG INTERACTION [None]
  - NIGHT SWEATS [None]
  - PAIN [None]
